FAERS Safety Report 8001316-2 (Version None)
Quarter: 2011Q4

REPORT INFORMATION
  Report Type: 
  Country: None (occurrence: None)
  Receive Date: 20111222
  Receipt Date: 20111215
  Transmission Date: 20120403
  Serious: Yes (Life-Threatening, Other)
  Sender: FDA-Public Use
  Company Number: MX-SANOFI-AVENTIS-2011SA082588

PATIENT
  Age: 82 Year
  Sex: Male

DRUGS (1)
  1. DRONEDARONE HCL [Suspect]
     Route: 065

REACTIONS (1)
  - INFARCTION [None]
